FAERS Safety Report 23382086 (Version 1)
Quarter: 2024Q1

REPORT INFORMATION
  Report Type: Spontaneous
  Country: US (occurrence: None)
  Receive Date: 20240108
  Receipt Date: 20240108
  Transmission Date: 20240410
  Serious: No
  Sender: FDA-Public Use
  Company Number: None

PATIENT
  Age: 73 Year
  Sex: Female

DRUGS (3)
  1. ISONIAZID [Suspect]
     Active Substance: ISONIAZID
     Indication: Tuberculosis
     Dosage: 300 MG DAILY ORAL?
     Route: 048
     Dates: start: 20230822, end: 20230915
  2. RIFAMPIN [Suspect]
     Active Substance: RIFAMPIN
  3. PYRIDOXINE [Suspect]
     Active Substance: PYRIDOXINE
     Dates: start: 20230822, end: 20230915

REACTIONS (5)
  - Nausea [None]
  - Heart rate increased [None]
  - Dyspnoea [None]
  - Malaise [None]
  - Anxiety [None]

NARRATIVE: CASE EVENT DATE: 20230915
